FAERS Safety Report 9399393 (Version 1)
Quarter: 2013Q3

REPORT INFORMATION
  Report Type: Spontaneous
  Country: US (occurrence: None)
  Receive Date: 20130709
  Receipt Date: 20130709
  Transmission Date: 20140515
  Serious: Yes (Hospitalization)
  Sender: FDA-Public Use
  Company Number: FK201302365

PATIENT
  Age: 53 Year
  Sex: Male

DRUGS (5)
  1. CYTARABINE [Suspect]
     Indication: ACUTE MYELOID LEUKAEMIA
  2. ETOPOSIDE [Suspect]
     Indication: ACUTE MYELOID LEUKAEMIA
  3. MITOXANTRONE [Suspect]
     Indication: ACUTE MYELOID LEUKAEMIA
  4. LENALIDOMIDE [Suspect]
     Indication: ACUTE MYELOID LEUKAEMIA
  5. SORAFENIB [Suspect]
     Indication: ACUTE MYELOID LEUKAEMIA

REACTIONS (4)
  - Acute febrile neutrophilic dermatosis [None]
  - Fatigue [None]
  - Pneumocystis jirovecii pneumonia [None]
  - Skin lesion [None]
